FAERS Safety Report 6426576-0 (Version None)
Quarter: 2009Q4

REPORT INFORMATION
  Report Type: 
  Country: None (occurrence: None)
  Receive Date: 20091104
  Receipt Date: 20091026
  Transmission Date: 20100525
  Serious: Yes (Hospitalization)
  Sender: FDA-Public Use
  Company Number: GB-NOVOPROD-292873

PATIENT
  Sex: Male

DRUGS (3)
  1. NOVOMIX 30 [Suspect]
     Indication: TYPE 2 DIABETES MELLITUS
     Dosage: 15.5 IU, BID (14 TO 17)
     Route: 058
     Dates: start: 20070101
  2. NOVOMIX 30 [Suspect]
     Dosage: 40 IU, BID
  3. NOVOMIX 30 [Suspect]
     Dosage: 34 IU, BID
     Route: 058

REACTIONS (4)
  - ENCEPHALITIS VIRAL [None]
  - HYPERGLYCAEMIA [None]
  - HYPOGLYCAEMIC SEIZURE [None]
  - PNEUMONIA [None]
